FAERS Safety Report 11743555 (Version 7)
Quarter: 2016Q1

REPORT INFORMATION
  Report Type: Report from Study
  Country: CA (occurrence: CA)
  Receive Date: 20151116
  Receipt Date: 20160222
  Transmission Date: 20160525
  Serious: Yes (Hospitalization, Other)
  Sender: FDA-Public Use
  Company Number: CA-GILEAD-2015-0168396

PATIENT
  Age: 82 Year
  Sex: Male

DRUGS (18)
  1. VITAMIN D                          /00107901/ [Concomitant]
     Active Substance: ERGOCALCIFEROL
  2. SERAX                              /00040901/ [Concomitant]
  3. PLAVIX [Concomitant]
     Active Substance: CLOPIDOGREL BISULFATE
  4. ASPIRIN                            /00002701/ [Concomitant]
     Active Substance: ASPIRIN
  5. FOLIC ACID. [Concomitant]
     Active Substance: FOLIC ACID
  6. RITUXAN [Concomitant]
     Active Substance: RITUXIMAB
     Dosage: UNK
     Route: 042
     Dates: end: 2015
  7. EZETROL [Concomitant]
     Active Substance: EZETIMIBE
  8. IDELALISIB [Suspect]
     Active Substance: IDELALISIB
     Indication: CHRONIC LYMPHOCYTIC LEUKAEMIA
     Dosage: 150 MG, BID
     Route: 048
     Dates: start: 20150807, end: 20151115
  9. LASIX [Concomitant]
     Active Substance: FUROSEMIDE
  10. VENTOLIN [Concomitant]
     Active Substance: ALBUTEROL SULFATE
  11. NITROGLYCERIN. [Concomitant]
     Active Substance: NITROGLYCERIN
  12. ALTACE [Concomitant]
     Active Substance: RAMIPRIL
  13. IDELALISIB [Suspect]
     Active Substance: IDELALISIB
     Dosage: 150 MG, BID
     Route: 048
     Dates: start: 2015
  14. LIPITOR [Concomitant]
     Active Substance: ATORVASTATIN CALCIUM
  15. ADVAIR HFA [Concomitant]
     Active Substance: FLUTICASONE PROPIONATE\SALMETEROL XINAFOATE
  16. RITUXAN [Concomitant]
     Active Substance: RITUXIMAB
     Indication: PRODUCT USED FOR UNKNOWN INDICATION
     Dosage: UNK
     Route: 042
     Dates: start: 20151106, end: 20151106
  17. METOPROLOL. [Concomitant]
     Active Substance: METOPROLOL
  18. LUTEIN ZEAXANTHIN [Concomitant]

REACTIONS (21)
  - Pyrexia [Recovered/Resolved]
  - Malaise [Unknown]
  - Pneumonia [Recovering/Resolving]
  - Chills [Unknown]
  - Fatigue [Unknown]
  - Blood culture positive [Unknown]
  - Feeling hot [Recovered/Resolved]
  - Body temperature increased [Recovered/Resolved]
  - Fluid retention [Unknown]
  - Peripheral coldness [Unknown]
  - Cough [Recovered/Resolved]
  - Productive cough [Unknown]
  - White blood cell count decreased [Recovering/Resolving]
  - Weight increased [Unknown]
  - Dysuria [Unknown]
  - Decreased appetite [Unknown]
  - Asthenia [Unknown]
  - Tremor [Unknown]
  - Weight decreased [Unknown]
  - Mobility decreased [Recovering/Resolving]
  - Feeding disorder [Unknown]

NARRATIVE: CASE EVENT DATE: 20150908
